FAERS Safety Report 15566101 (Version 1)
Quarter: 2018Q4

REPORT INFORMATION
  Report Type: Spontaneous
  Country: US (occurrence: US)
  Receive Date: 20181030
  Receipt Date: 20181030
  Transmission Date: 20190205
  Serious: No
  Sender: FDA-Public Use
  Company Number: US-NOVOPROD-580271

PATIENT
  Age: 85 Year
  Sex: Female

DRUGS (1)
  1. VAGIFEM LD [Suspect]
     Active Substance: ESTRADIOL
     Indication: UTERINE PROLAPSE
     Dosage: 10 MCG, BIW
     Route: 067
     Dates: start: 20160428

REACTIONS (3)
  - Drug ineffective [Recovered/Resolved]
  - Pollakiuria [Recovered/Resolved]
  - Product quality issue [Recovered/Resolved]

NARRATIVE: CASE EVENT DATE: 201712
